FAERS Safety Report 12882528 (Version 3)
Quarter: 2018Q2

REPORT INFORMATION
  Report Type: Report from Study
  Country: FR (occurrence: FR)
  Receive Date: 20161025
  Receipt Date: 20180605
  Transmission Date: 20180711
  Serious: Yes (Life-Threatening, Hospitalization, Other)
  Sender: FDA-Public Use
  Company Number: FR-SEATTLE GENETICS-2016SGN01662

PATIENT
  Age: 36 Year
  Sex: Male
  Weight: 90 kg

DRUGS (9)
  1. SURGAM [Concomitant]
     Active Substance: TIAPROFENIC ACID
     Indication: PAIN
     Dosage: 200 MG, UNK
  2. LOPERAMIDE HYDROCHLORIDE. [Concomitant]
     Active Substance: LOPERAMIDE HYDROCHLORIDE
     Indication: PROPHYLAXIS AGAINST DIARRHOEA
     Dosage: 2 MG, UNK
  3. BRENTUXIMAB VEDOTIN-MPI [Suspect]
     Active Substance: BRENTUXIMAB VEDOTIN
     Indication: HODGKIN^S DISEASE
     Dosage: 162 MG, UNK
     Route: 065
     Dates: start: 20160205, end: 20160205
  4. IMODIUM [Concomitant]
     Active Substance: LOPERAMIDE HYDROCHLORIDE
     Indication: PROPHYLAXIS AGAINST DIARRHOEA
     Dosage: 2 MG, UNK
  5. RACECADOTRIL [Concomitant]
     Active Substance: RACECADOTRIL
     Indication: PROPHYLAXIS AGAINST DIARRHOEA
     Dosage: 175 MG, UNK
     Route: 048
  6. MEDROL [Concomitant]
     Active Substance: METHYLPREDNISOLONE
     Indication: LYMPHOMA
     Dosage: 16 MG, UNK
     Dates: start: 20160205
  7. TIAPROFENIC ACID [Concomitant]
     Active Substance: TIAPROFENIC ACID
     Indication: PAIN
     Dosage: 200 MG, UNK
  8. RACECADOTRIL [Concomitant]
     Active Substance: RACECADOTRIL
     Dosage: 175 MG, UNK
     Route: 048
  9. METHYLPREDNISOLONE. [Concomitant]
     Active Substance: METHYLPREDNISOLONE
     Indication: LYMPHOMA
     Dosage: 16 MG, UNK
     Dates: start: 20160205

REACTIONS (5)
  - Thrombophlebitis superficial [Recovered/Resolved]
  - Pancreatitis acute [Recovered/Resolved]
  - Splenic thrombosis [Recovered/Resolved]
  - Hodgkin^s disease recurrent [Unknown]
  - Weight increased [Unknown]

NARRATIVE: CASE EVENT DATE: 20160216
